FAERS Safety Report 7834064-X (Version None)
Quarter: 2011Q4

REPORT INFORMATION
  Report Type: 
  Country: None (occurrence: None)
  Receive Date: 20111024
  Receipt Date: 20111024
  Transmission Date: 20120403
  Serious: Yes (Other)
  Sender: FDA-Public Use
  Company Number: None

PATIENT
  Age: 65 Year
  Sex: Female
  Weight: 92.079 kg

DRUGS (1)
  1. TRAMADOL HCL [Suspect]
     Indication: FIBROMYALGIA
     Dosage: 50 ECL MG
     Route: 048
     Dates: start: 20111019, end: 20111020

REACTIONS (11)
  - VOMITING [None]
  - DRUG HYPERSENSITIVITY [None]
  - FEELING ABNORMAL [None]
  - PRURITUS [None]
  - INSOMNIA [None]
  - DIZZINESS [None]
  - ASTHENIA [None]
  - DYSPHONIA [None]
  - SPEECH DISORDER [None]
  - NAUSEA [None]
  - ANXIETY [None]
